FAERS Safety Report 5940172-0 (Version None)
Quarter: 2008Q4

REPORT INFORMATION
  Report Type: 
  Country: None (occurrence: None)
  Receive Date: 20081030
  Receipt Date: 20081021
  Transmission Date: 20090506
  Serious: Yes (Death, Hospitalization)
  Sender: FDA-Public Use
  Company Number: 2008BI026708

PATIENT
  Age: 49 Year
  Sex: Female

DRUGS (18)
  1. TYSABRI [Suspect]
     Indication: MULTIPLE SCLEROSIS
     Dosage: 300 MG, QM, IV
     Route: 042
     Dates: start: 20050223, end: 20050223
  2. TYSABRI [Suspect]
     Indication: MULTIPLE SCLEROSIS
     Dosage: 300 MG, QM, IV
     Route: 042
     Dates: start: 20061109, end: 20080401
  3. ENDOCET [Concomitant]
  4. AMBIEN [Concomitant]
  5. VALIUM [Concomitant]
  6. LASIX [Concomitant]
  7. POTASSIUM CHLORIDE [Concomitant]
  8. SOMA [Concomitant]
  9. BACLOFEN [Concomitant]
  10. ZYPREXA [Concomitant]
  11. DOXEPIN HCL [Concomitant]
  12. CRESTOR [Concomitant]
  13. TOPAMAX [Concomitant]
  14. PREDNISONE TAB [Concomitant]
  15. PROZAC [Concomitant]
  16. ELAVIL [Concomitant]
  17. OXYCONTIN [Concomitant]
  18. PREV MED [Concomitant]

REACTIONS (23)
  - ABDOMINAL PAIN [None]
  - ACQUIRED CARDIAC SEPTAL DEFECT [None]
  - BLOOD CALCIUM DECREASED [None]
  - BLOOD CREATINE PHOSPHOKINASE MB INCREASED [None]
  - BLOOD CREATININE DECREASED [None]
  - BLOOD POTASSIUM DECREASED [None]
  - BLOOD UREA DECREASED [None]
  - BLOOD URINE PRESENT [None]
  - DEATH OF RELATIVE [None]
  - DEPRESSION [None]
  - FALL [None]
  - HAEMATEMESIS [None]
  - HAEMATOCRIT DECREASED [None]
  - HAEMOGLOBIN DECREASED [None]
  - HYPOPHAGIA [None]
  - INTENTIONAL OVERDOSE [None]
  - LIPASE DECREASED [None]
  - NAUSEA [None]
  - NUCLEAR MAGNETIC RESONANCE IMAGING BRAIN ABNORMAL [None]
  - PNEUMONIA [None]
  - RHABDOMYOLYSIS [None]
  - STRESS [None]
  - WHITE BLOOD CELL COUNT INCREASED [None]
